FAERS Safety Report 25919505 (Version 3)
Quarter: 2025Q4

REPORT INFORMATION
  Report Type: Spontaneous
  Country: US (occurrence: US)
  Receive Date: 20251014
  Receipt Date: 20251113
  Transmission Date: 20260118
  Serious: Yes (Death)
  Sender: SAREPTA THERAPEUTICS
  Company Number: US-SAREPTA THERAPEUTICS INC.-SRP2025-006501

PATIENT
  Age: 25 Year
  Sex: Male
  Weight: 47.63 kg

DRUGS (4)
  1. VYONDYS 53 [Suspect]
     Active Substance: GOLODIRSEN
     Indication: Duchenne muscular dystrophy
     Dosage: 1900 MILLIGRAM, WEEKLY
     Dates: start: 20201107, end: 20250923
  2. MELATONIN [Concomitant]
     Active Substance: MELATONIN
     Indication: Sleep disorder
     Dosage: 10 MILLIGRAM, HS
     Dates: start: 20201107
  3. LISINOPRIL [Concomitant]
     Active Substance: LISINOPRIL
     Indication: Increased ventricular afterload
     Dosage: 5 MILLIGRAM, QD
     Dates: start: 20201107
  4. ALBUTEROL SULFATE [Concomitant]
     Active Substance: ALBUTEROL SULFATE
     Indication: Product used for unknown indication
     Dosage: UNK (108 MCG/ACT INHALATION AEPB)

REACTIONS (6)
  - Respiratory failure [Fatal]
  - Disease progression [Fatal]
  - Pain in extremity [Unknown]
  - Musculoskeletal discomfort [Recovered/Resolved]
  - Periarthritis [Unknown]
  - Weight decreased [Unknown]

NARRATIVE: CASE EVENT DATE: 20250929
